FAERS Safety Report 9026189 (Version 1)
Quarter: 2013Q1

REPORT INFORMATION
  Report Type: Spontaneous
  Country: US (occurrence: None)
  Receive Date: 20130108
  Receipt Date: 20130108
  Transmission Date: 20140127
  Serious: Yes (Hospitalization)
  Sender: FDA-Public Use
  Company Number: 2012AP004364

PATIENT
  Age: 9 Year
  Sex: Female

DRUGS (5)
  1. AZITHROMYCIN TABLETS [Suspect]
     Indication: CAT SCRATCH DISEASE
  2. CIPROFLOXACIN [Suspect]
  3. TACROLIMUS [Suspect]
  4. SIROLIMUS [Suspect]
  5. AZATHIOPRINE [Suspect]

REACTIONS (9)
  - Jarisch-Herxheimer reaction [None]
  - Thrombocytopenia [None]
  - Anaemia [None]
  - Microcytic anaemia [None]
  - Lymphopenia [None]
  - Pulmonary oedema [None]
  - Pleural effusion [None]
  - Bacillary angiomatosis [None]
  - Respiratory distress [None]
